FAERS Safety Report 4967141-1 (Version None)
Quarter: 2006Q2

REPORT INFORMATION
  Report Type: 
  Country: None (occurrence: None)
  Receive Date: 20060404
  Receipt Date: 20060320
  Transmission Date: 20061013
  Serious: Yes (Death)
  Sender: FDA-Public Use
  Company Number: 2006S1001310

PATIENT
  Age: 38 Year
  Sex: Male

DRUGS (8)
  1. CLOZAPINE [Suspect]
     Indication: SCHIZOPHRENIA
     Dosage: 600 MG; QD; ORAL
     Route: 048
  2. ANTIDEPRESSANTS [Concomitant]
  3. DIAZEPAM [Concomitant]
  4. ATROVASTATIN [Concomitant]
  5. ESOMEPRAZOLE MAGNESIUM [Concomitant]
  6. IPARTROPIUM BROMIDE [Concomitant]
  7. DEXAMFETAMINE SULFATE/AMFETAMINE SULFATE/DEXAMFETAMINE SACCHARATE/AMFE [Concomitant]
  8. SALBUTAMOL [Concomitant]

REACTIONS (1)
  - DEATH [None]
